FAERS Safety Report 19278208 (Version 15)
Quarter: 2023Q2

REPORT INFORMATION
  Report Type: Report from Study
  Country: CN (occurrence: None)
  Receive Date: 20210520
  Receipt Date: 20230428
  Transmission Date: 20230721
  Serious: Yes (Hospitalization)
  Sender: FDA-Public Use
  Company Number: CN-ROCHE-2285466

PATIENT
  Age: 3 Year
  Sex: Male
  Weight: 42 kg

DRUGS (12)
  1. RISDIPLAM [Suspect]
     Active Substance: RISDIPLAM
     Indication: Spinal muscular atrophy
     Route: 048
     Dates: start: 20180720
  2. RISDIPLAM [Suspect]
     Active Substance: RISDIPLAM
     Indication: Spinal muscular atrophy
     Dosage: DOSAGE FORM: 60 MG/BOTTLE?MOST RECENT DOSE PRIOR TO SAE 10/MAR/2019,01/NOV/2020, 13/OCT/2021, 08/JUL
     Route: 048
  3. MONTELUKAST SODIUM [Concomitant]
     Active Substance: MONTELUKAST SODIUM
     Route: 048
     Dates: start: 20210728, end: 20210803
  4. MONTELUKAST SODIUM [Concomitant]
     Active Substance: MONTELUKAST SODIUM
     Dates: start: 20221007, end: 20221007
  5. MONTELUKAST SODIUM [Concomitant]
     Active Substance: MONTELUKAST SODIUM
     Dates: start: 20221014
  6. AZITHROMYCIN;SODIUM CHLORIDE [Concomitant]
     Dosage: DAILY DOSE: 0.2G, 200ML
     Dates: start: 20210730, end: 20210803
  7. AZITHROMYCIN;SODIUM CHLORIDE [Concomitant]
     Dosage: 0.2 G/DAY
     Dates: start: 20220801, end: 20220801
  8. AZITHROMYCIN;SODIUM CHLORIDE [Concomitant]
     Dosage: ONGOING
     Dates: start: 20220802
  9. CEFOPERAZONE SODIUM\SULBACTAM SODIUM [Concomitant]
     Active Substance: CEFOPERAZONE SODIUM\SULBACTAM SODIUM
     Dosage: DAILY DOSE: 1.4 G, 200 ML
     Dates: start: 20210730, end: 20210803
  10. METHYLPREDNISOLONE [Concomitant]
     Active Substance: METHYLPREDNISOLONE
     Dates: start: 202207, end: 202207
  11. METHYLPREDNISOLONE [Concomitant]
     Active Substance: METHYLPREDNISOLONE
     Dates: start: 20220802, end: 202208
  12. METHYLPREDNISOLONE [Concomitant]
     Active Substance: METHYLPREDNISOLONE
     Dates: start: 20221008

REACTIONS (6)
  - Pneumonia [Recovered/Resolved]
  - Bronchitis [Recovered/Resolved]
  - Asthma [Recovering/Resolving]
  - Asthma [Recovered/Resolved]
  - Pneumonia [Recovered/Resolved]
  - Pneumonia mycoplasmal [Recovered/Resolved]

NARRATIVE: CASE EVENT DATE: 20181101
